FAERS Safety Report 4591749-9 (Version None)
Quarter: 2005Q1

REPORT INFORMATION
  Report Type: 
  Country: None (occurrence: None)
  Receive Date: 20050218
  Receipt Date: 20050210
  Transmission Date: 20050727
  Serious: Yes (Hospitalization)
  Sender: FDA-Public Use
  Company Number: 200510080BWH

PATIENT
  Age: 56 Year
  Sex: Male
  Weight: 11.3399 kg

DRUGS (9)
  1. LEVITRA [Suspect]
     Dosage: 10 MG, TOTAL DAILY, ORAL
     Route: 048
     Dates: start: 20041217
  2. ACTOS [Concomitant]
  3. GLUCOPHAGE [Concomitant]
  4. LISINOPRIL [Concomitant]
  5. HYDROCHLOROTHIAZIDE [Concomitant]
  6. AMARYL [Concomitant]
  7. IBUPROFEN [Concomitant]
  8. PHENERGAN [Concomitant]
  9. INSULIN [Concomitant]

REACTIONS (15)
  - ABASIA [None]
  - ASTHENIA [None]
  - CAROTID ARTERY ATHEROMA [None]
  - CEREBRAL ARTERY OCCLUSION [None]
  - CEREBRAL INFARCTION [None]
  - DYSARTHRIA [None]
  - FACIAL PALSY [None]
  - HEMIPARESIS [None]
  - HYPOAESTHESIA [None]
  - ISCHAEMIC STROKE [None]
  - MENINGIOMA [None]
  - NEUROMA [None]
  - SWELLING FACE [None]
  - TRIGEMINAL NERVE DISORDER [None]
  - VASCULAR OCCLUSION [None]
